FAERS Safety Report 18545614 (Version 1)
Quarter: 2020Q4

REPORT INFORMATION
  Report Type: Spontaneous
  Country: US (occurrence: US)
  Receive Date: 20201125
  Receipt Date: 20201125
  Transmission Date: 20210114
  Serious: Yes (Hospitalization, Other)
  Sender: FDA-Public Use
  Company Number: US-AMNEAL PHARMACEUTICALS-2020-AMRX-03632

PATIENT
  Age: 65 Year
  Sex: Female
  Weight: 99.34 kg

DRUGS (6)
  1. PROGESTERONE. [Suspect]
     Active Substance: PROGESTERONE
     Indication: MENOPAUSAL SYMPTOMS
     Dosage: 100 MILLIGRAM, QD
     Route: 048
     Dates: start: 2010
  2. IMITREX [Concomitant]
     Active Substance: SUMATRIPTAN SUCCINATE
     Indication: MIGRAINE
     Dosage: UNK
     Route: 065
     Dates: start: 2005
  3. TYLENOL [Concomitant]
     Active Substance: ACETAMINOPHEN
     Indication: INJECTION SITE PAIN
     Dosage: UNK
     Route: 065
     Dates: start: 202008, end: 202008
  4. ALEVE [Concomitant]
     Active Substance: NAPROXEN SODIUM
     Indication: INJECTION SITE PAIN
     Dosage: UNK
     Route: 065
     Dates: start: 202008, end: 202008
  5. ESTRADIOL TRANSDERMAL SYSTEM [Suspect]
     Active Substance: ESTRADIOL
     Indication: MENOPAUSAL SYMPTOMS
     Dosage: 37.5 MICROGRAM, QD
     Route: 062
     Dates: start: 2010
  6. ALEVE [Concomitant]
     Active Substance: NAPROXEN SODIUM
     Indication: HEADACHE

REACTIONS (3)
  - Pulmonary embolism [Recovered/Resolved]
  - Cataract [Not Recovered/Not Resolved]
  - Tendon rupture [Recovered/Resolved]

NARRATIVE: CASE EVENT DATE: 2017
